FAERS Safety Report 18152382 (Version 3)
Quarter: 2020Q3

REPORT INFORMATION
  Report Type: Spontaneous
  Country: US (occurrence: US)
  Receive Date: 20200814
  Receipt Date: 20200910
  Transmission Date: 20201103
  Serious: No
  Sender: FDA-Public Use
  Company Number: US-GLAXOSMITHKLINE-US2020AMR153693

PATIENT
  Sex: Female

DRUGS (1)
  1. ZEJULA [Suspect]
     Active Substance: NIRAPARIB
     Indication: OVARIAN CANCER
     Dosage: 200 MG, QD
     Route: 048
     Dates: start: 20200728

REACTIONS (6)
  - Arthralgia [Unknown]
  - Skin burning sensation [Unknown]
  - Somnolence [Unknown]
  - Tumour marker increased [Unknown]
  - Arthritis [Unknown]
  - Photosensitivity reaction [Unknown]
